FAERS Safety Report 4722726-2 (Version None)
Quarter: 2005Q3

REPORT INFORMATION
  Report Type: 
  Country: None (occurrence: None)
  Receive Date: 20050720
  Receipt Date: 20050706
  Transmission Date: 20060218
  Serious: Yes (Hospitalization)
  Sender: FDA-Public Use
  Company Number: SUS1-2005-00536

PATIENT
  Age: 15 Year
  Sex: Male

DRUGS (1)
  1. ADDERAL (DEXTROAMPHETAMINE SULFATE, DEXTROAMPHETAMINE SACCHARATE, AMPH [Suspect]
     Dosage: SEE IMAGE
     Route: 048

REACTIONS (22)
  - ACUTE MYOCARDIAL INFARCTION [None]
  - AGGRESSION [None]
  - ANXIETY [None]
  - ARTERIOSPASM CORONARY [None]
  - BACK PAIN [None]
  - BLOOD CREATINE PHOSPHOKINASE INCREASED [None]
  - BLOOD CREATINE PHOSPHOKINASE MB INCREASED [None]
  - BLOOD PRESSURE DIASTOLIC DECREASED [None]
  - BODY TEMPERATURE INCREASED [None]
  - CARDIOVASCULAR DISORDER [None]
  - DRUG TOXICITY [None]
  - EJECTION FRACTION DECREASED [None]
  - ELECTROCARDIOGRAM ST SEGMENT ELEVATION [None]
  - HYPERHIDROSIS [None]
  - HYPOAESTHESIA [None]
  - LEFT VENTRICULAR END-DIASTOLIC PRESSURE INCREASED [None]
  - MUSCULOSKELETAL STIFFNESS [None]
  - PARAESTHESIA [None]
  - RESPIRATORY RATE INCREASED [None]
  - SINUS TACHYCARDIA [None]
  - TREATMENT NONCOMPLIANCE [None]
  - VENTRICULAR HYPOKINESIA [None]
